FAERS Safety Report 13447881 (Version 1)
Quarter: 2017Q2

REPORT INFORMATION
  Report Type: Report from Study
  Country: ZA (occurrence: ZA)
  Receive Date: 20170417
  Receipt Date: 20170417
  Transmission Date: 20170830
  Serious: Yes (Hospitalization)
  Sender: FDA-Public Use
  Company Number: PHHY2017ZA057718

PATIENT
  Sex: Female

DRUGS (1)
  1. CO-TAREG [Suspect]
     Active Substance: HYDROCHLOROTHIAZIDE\VALSARTAN
     Indication: HYPERTENSION
     Dosage: (HYDROCHLOROTHIAZIDE 12.5 MG AND VALSARTAN 80 MG)
     Route: 048
     Dates: start: 20161027

REACTIONS (2)
  - Blood magnesium increased [Recovered/Resolved]
  - Blood calcium decreased [Recovered/Resolved]
